FAERS Safety Report 5692533-5 (Version None)
Quarter: 2008Q2

REPORT INFORMATION
  Report Type: 
  Country: None (occurrence: None)
  Receive Date: 20080402
  Receipt Date: 20080328
  Transmission Date: 20081010
  Serious: Yes (Hospitalization)
  Sender: FDA-Public Use
  Company Number: DE-ABBOTT-08P-062-0441940-00

PATIENT
  Sex: Male

DRUGS (6)
  1. TEVETEN HCT [Suspect]
     Indication: BLOOD PRESSURE MANAGEMENT
     Route: 048
     Dates: start: 20070814
  2. NISOLDIPINE [Concomitant]
     Indication: ESSENTIAL HYPERTENSION
     Route: 048
  3. ACETYLSALICYLIC ACID SRT [Concomitant]
     Indication: PAIN
     Route: 048
  4. ALLOPURINOL [Concomitant]
     Indication: HYPERURICAEMIA
     Route: 048
  5. SIMVASTATIN [Concomitant]
     Indication: HYPERLIPIDAEMIA
     Route: 048
  6. OMEPRAZOLE [Concomitant]
     Indication: GASTROINTESTINAL DISORDER
     Route: 048

REACTIONS (2)
  - BRAIN STEM INFARCTION [None]
  - HYPERTENSIVE CRISIS [None]
